FAERS Safety Report 19773907 (Version 14)
Quarter: 2025Q1

REPORT INFORMATION
  Report Type: Spontaneous
  Country: US (occurrence: US)
  Receive Date: 20210831
  Receipt Date: 20250324
  Transmission Date: 20250409
  Serious: Yes (Other)
  Sender: PFIZER
  Company Number: US-PFIZER INC-202101097460

PATIENT
  Age: 46 Year
  Sex: Male

DRUGS (3)
  1. EUCRISA [Suspect]
     Active Substance: CRISABOROLE
     Indication: Tissue injury
     Route: 061
     Dates: start: 2017
  2. EUCRISA [Suspect]
     Active Substance: CRISABOROLE
     Indication: Skin disorder
     Dosage: (EUCRISA OINTMENT 2% 60G TUBE) APPLY 1 DOSE TOPICALLY IN THE MORNING AND 1 DOSE IN THE EVENING
     Route: 061
  3. EUCRISA [Suspect]
     Active Substance: CRISABOROLE
     Indication: Thermal burn
     Dosage: (EUCRISA  2% 60G TUBE) EVERYDAY/DAILY BASIS
     Route: 061

REACTIONS (4)
  - Skin cancer [Unknown]
  - Haemarthrosis [Unknown]
  - Off label use [Unknown]
  - Drug effective for unapproved indication [Unknown]
